FAERS Safety Report 24386139 (Version 2)
Quarter: 2024Q4

REPORT INFORMATION
  Report Type: Report from Study
  Country: GB (occurrence: GB)
  Receive Date: 20241001
  Receipt Date: 20241007
  Transmission Date: 20250115
  Serious: No
  Sender: IPSEN
  Company Number: GB-IPSEN Group, Research and Development-2024-19614

PATIENT
  Sex: Male

DRUGS (1)
  1. LANREOTIDE ACETATE [Suspect]
     Active Substance: LANREOTIDE ACETATE
     Indication: Product used for unknown indication
     Route: 065

REACTIONS (2)
  - Fatigue [Recovering/Resolving]
  - Abdominal pain [Recovering/Resolving]
